FAERS Safety Report 5208812-1 (Version None)
Quarter: 2007Q1

REPORT INFORMATION
  Report Type: 
  Country: None (occurrence: None)
  Receive Date: 20070116
  Receipt Date: 20070109
  Transmission Date: 20070707
  Serious: Yes (Hospitalization)
  Sender: FDA-Public Use
  Company Number: CN-ELI_LILLY_AND_COMPANY-CN200701000015

PATIENT
  Age: 4 Month
  Sex: Male

DRUGS (1)
  1. CECLOR [Suspect]
     Indication: NASOPHARYNGITIS
     Dosage: 14 MG, 3/D
     Route: 048
     Dates: start: 20060630, end: 20060703

REACTIONS (2)
  - DIARRHOEA [None]
  - HAEMATOCHEZIA [None]
